FAERS Safety Report 14502074 (Version 1)
Quarter: 2018Q1

REPORT INFORMATION
  Report Type: Spontaneous
  Country: US (occurrence: US)
  Receive Date: 20180208
  Receipt Date: 20180208
  Transmission Date: 20180509
  Serious: No
  Sender: FDA-Public Use
  Company Number: US-AUROBINDO-AUR-APL-2017-33660

PATIENT
  Sex: Female

DRUGS (3)
  1. SIMVASTATIN TABLET [Suspect]
     Active Substance: SIMVASTATIN
     Dosage: 80 MG EVERY DAY
     Route: 048
  2. SIMVASTATIN TABLET [Suspect]
     Active Substance: SIMVASTATIN
     Indication: PRODUCT USED FOR UNKNOWN INDICATION
     Dosage: 40 MG 4 DAYS A WEEK
     Route: 048
  3. SIMVASTATIN TABLET [Suspect]
     Active Substance: SIMVASTATIN
     Dosage: 80 MG 3 DAYS A WEEK
     Route: 048

REACTIONS (1)
  - Pain [Not Recovered/Not Resolved]
